FAERS Safety Report 24717532 (Version 1)
Quarter: 2024Q4

REPORT INFORMATION
  Report Type: Spontaneous
  Country: US (occurrence: US)
  Receive Date: 20241210
  Receipt Date: 20241210
  Transmission Date: 20250114
  Serious: Yes (Other)
  Sender: BRISTOL-MYERS SQUIBB COMPANY
  Company Number: US-BRISTOL-MYERS SQUIBB COMPANY-2024-187862

PATIENT
  Age: 43 Year
  Sex: Male

DRUGS (9)
  1. LENALIDOMIDE [Suspect]
     Active Substance: LENALIDOMIDE
     Indication: Plasma cell myeloma
     Dosage: TAKE 1 CAPSULE BY MOUTH DAILY FOR 14 DAYS, THEN TAKE 7 DAYS OFF
     Route: 048
  2. VELCADE [Suspect]
     Active Substance: BORTEZOMIB
     Indication: Product used for unknown indication
  3. DARZALEX FASPRO [Suspect]
     Active Substance: DARATUMUMAB\HYALURONIDASE-FIHJ
     Indication: Product used for unknown indication
  4. OXYCODONE HYDROCHLORIDE [Concomitant]
     Active Substance: OXYCODONE HYDROCHLORIDE
     Dosage: ER
  5. CELECOXIB [Concomitant]
     Active Substance: CELECOXIB
  6. DRISDOL [Concomitant]
     Active Substance: ERGOCALCIFEROL
  7. PEPCID RPD [Concomitant]
     Active Substance: FAMOTIDINE
  8. HYZAAR [Concomitant]
     Active Substance: HYDROCHLOROTHIAZIDE\LOSARTAN POTASSIUM
  9. ATIVAN [Concomitant]
     Active Substance: LORAZEPAM

REACTIONS (4)
  - Insomnia [Unknown]
  - Fatigue [Unknown]
  - Neuropathy peripheral [Unknown]
  - Off label use [Unknown]
